FAERS Safety Report 19451233 (Version 1)
Quarter: 2021Q2

REPORT INFORMATION
  Report Type: Spontaneous
  Country: US (occurrence: US)
  Receive Date: 20210622
  Receipt Date: 20210622
  Transmission Date: 20210717
  Serious: Yes (Hospitalization)
  Sender: FDA-Public Use
  Company Number: None

PATIENT
  Sex: Male

DRUGS (15)
  1. AMOX/K CLAV [Concomitant]
     Active Substance: AMOXICILLIN\CLAVULANATE POTASSIUM
  2. FLUOROURACIL. [Concomitant]
     Active Substance: FLUOROURACIL
  3. ROSUVASTATIN. [Concomitant]
     Active Substance: ROSUVASTATIN
  4. FUROSEMIDE. [Concomitant]
     Active Substance: FUROSEMIDE
  5. LOSARTAN POT [Concomitant]
     Active Substance: LOSARTAN POTASSIUM
  6. FOSFOMYCIN [Concomitant]
     Active Substance: FOSFOMYCIN
  7. PREDNISONE. [Concomitant]
     Active Substance: PREDNISONE
  8. CEPHALEXIN. [Concomitant]
     Active Substance: CEPHALEXIN
  9. XARELTO [Concomitant]
     Active Substance: RIVAROXABAN
  10. ESBRIET [Suspect]
     Active Substance: PIRFENIDONE
     Indication: IDIOPATHIC PULMONARY FIBROSIS
     Route: 048
     Dates: start: 20150528
  11. MULTIVITAMIN [Concomitant]
     Active Substance: VITAMINS
  12. AMLODIPINE [Concomitant]
     Active Substance: AMLODIPINE BESYLATE
  13. DICLOFENAC GEL [Concomitant]
     Active Substance: DICLOFENAC
  14. HYDROCORT (HYDROCORTISONE) [Concomitant]
     Active Substance: HYDROCORTISONE
  15. SANDIMMUNE [Concomitant]
     Active Substance: CYCLOSPORINE

REACTIONS (2)
  - Gait disturbance [None]
  - Lung operation [None]
